FAERS Safety Report 5917871-X (Version None)
Quarter: 2008Q4

REPORT INFORMATION
  Report Type: 
  Country: None (occurrence: None)
  Receive Date: 20081014
  Receipt Date: 20081007
  Transmission Date: 20090506
  Serious: Yes (Other)
  Sender: FDA-Public Use
  Company Number: US-ROCHE-545019

PATIENT
  Sex: Male
  Weight: 65.8 kg

DRUGS (2)
  1. ACCUTANE [Suspect]
     Indication: ACNE
     Route: 065
     Dates: start: 19940906
  2. ACCUTANE [Suspect]
     Dosage: ACCUTANE 40 MG EVERY OTHER DAY ALTERNATING WITH 80 MG
     Route: 065
     Dates: start: 19941004, end: 19950207

REACTIONS (14)
  - ANXIETY DISORDER [None]
  - CALCINOSIS [None]
  - COLITIS [None]
  - CROHN'S DISEASE [None]
  - DYSPEPSIA [None]
  - DYSPHAGIA [None]
  - EMOTIONAL DISTRESS [None]
  - FOLLICULITIS [None]
  - ILEITIS [None]
  - INFLAMMATORY BOWEL DISEASE [None]
  - MELANOCYTIC NAEVUS [None]
  - ORAL HERPES [None]
  - RASH [None]
  - SKIN PAPILLOMA [None]
